FAERS Safety Report 11770264 (Version 2)
Quarter: 2015Q4

REPORT INFORMATION
  Report Type: Spontaneous
  Country: JP (occurrence: JP)
  Receive Date: 20151123
  Receipt Date: 20151130
  Transmission Date: 20160304
  Serious: Yes (Other)
  Sender: FDA-Public Use
  Company Number: JP-JNJFOC-20151119825

PATIENT
  Age: 9 Decade
  Sex: Female

DRUGS (2)
  1. TRAMCET [Suspect]
     Active Substance: ACETAMINOPHEN\TRAMADOL
     Indication: PRODUCT USED FOR UNKNOWN INDICATION
     Dosage: 2 PER DAY
     Route: 048
  2. TRAMCET [Suspect]
     Active Substance: ACETAMINOPHEN\TRAMADOL
     Indication: PRODUCT USED FOR UNKNOWN INDICATION
     Dosage: 3 PER 1 DAY
     Route: 048

REACTIONS (4)
  - Abnormal behaviour [Unknown]
  - Hallucination [Recovering/Resolving]
  - Unresponsive to stimuli [Unknown]
  - Mental impairment [Unknown]

NARRATIVE: CASE EVENT DATE: 20151113
